FAERS Safety Report 8624835-4 (Version None)
Quarter: 2012Q3

REPORT INFORMATION
  Report Type: 
  Country: None (occurrence: None)
  Receive Date: 20120827
  Receipt Date: 20120803
  Transmission Date: 20120928
  Serious: No
  Sender: FDA-Public Use
  Company Number: US-009507513-1208USA002990

PATIENT

DRUGS (2)
  1. IMPLANON [Suspect]
     Indication: CONTRACEPTION
     Dosage: 3 YEARS
     Route: 059
     Dates: start: 20090720
  2. TYLENOL [Concomitant]
     Indication: PAIN
     Dosage: UNK

REACTIONS (6)
  - INCORRECT DRUG ADMINISTRATION DURATION [None]
  - PAIN IN EXTREMITY [None]
  - NAUSEA [None]
  - UNINTENDED PREGNANCY [None]
  - MEDICAL DEVICE COMPLICATION [None]
  - MALAISE [None]
